FAERS Safety Report 21584497 (Version 6)
Quarter: 2023Q4

REPORT INFORMATION
  Report Type: Spontaneous
  Country: US (occurrence: US)
  Receive Date: 20221111
  Receipt Date: 20231115
  Transmission Date: 20240109
  Serious: No
  Sender: FDA-Public Use
  Company Number: US-PFIZER INC-PV202200093918

PATIENT
  Age: 68 Year
  Sex: Male

DRUGS (2)
  1. EUCRISA [Suspect]
     Active Substance: CRISABOROLE
     Indication: Dyshidrotic eczema
     Dosage: APPLY THIN LAYER TO AFFECTED AREA ON FEET MONDAY-FRIDAY
     Route: 061
  2. EUCRISA [Suspect]
     Active Substance: CRISABOROLE
     Indication: Dermatitis

REACTIONS (2)
  - Gait disturbance [Unknown]
  - Off label use [Unknown]
